FAERS Safety Report 8803585 (Version 1)
Quarter: 2012Q4

REPORT INFORMATION
  Report Type: 
  Country: US (occurrence: US)
  Receive Date: 20120924
  Receipt Date: 20120924
  Transmission Date: 20130627
  Serious: No
  Sender: FDA-Public Use
  Company Number: US-PFIZER INC-2012235061

PATIENT
  Age: 38 Year
  Sex: Female
  Weight: 60.77 kg

DRUGS (3)
  1. NEURONTIN [Suspect]
     Indication: HEADACHE
     Dosage: 300 mg, 2x/day
     Route: 048
     Dates: start: 2009
  2. NEURONTIN [Suspect]
     Indication: MIGRAINE
  3. MULTIVITAMINS [Concomitant]
     Dosage: UNK

REACTIONS (1)
  - Off label use [Unknown]
